FAERS Safety Report 4514491-9 (Version None)
Quarter: 2004Q4

REPORT INFORMATION
  Report Type: 
  Country: None (occurrence: None)
  Receive Date: 20041126
  Receipt Date: 20041117
  Transmission Date: 20050328
  Serious: Yes (Other)
  Sender: FDA-Public Use
  Company Number: 20904

PATIENT
  Age: 84 Year
  Sex: Female
  Weight: 56.6996 kg

DRUGS (2)
  1. NIASPAN [Suspect]
     Dosage: 500 MG QPM PO
     Route: 048
     Dates: start: 20040908, end: 20040920
  2. COUMADIN [Concomitant]

REACTIONS (13)
  - BURNING SENSATION [None]
  - CHROMATURIA [None]
  - DERMATITIS EXFOLIATIVE [None]
  - DRY SKIN [None]
  - DYSPNOEA [None]
  - ERYTHEMA [None]
  - FEELING HOT [None]
  - FLUSHING [None]
  - HEADACHE [None]
  - LACRIMATION INCREASED [None]
  - PAIN [None]
  - PRURITUS GENERALISED [None]
  - TREMOR [None]
